FAERS Safety Report 24714131 (Version 1)
Quarter: 2024Q4

REPORT INFORMATION
  Report Type: Spontaneous
  Country: US (occurrence: US)
  Receive Date: 20241209
  Receipt Date: 20241209
  Transmission Date: 20250115
  Serious: No
  Sender: REGENERON
  Company Number: US-REGENERON PHARMACEUTICALS, INC.-2024-125823

PATIENT
  Age: 79 Year
  Sex: Female

DRUGS (16)
  1. EYLEA [Suspect]
     Active Substance: AFLIBERCEPT
     Indication: Neovascular age-related macular degeneration
     Dosage: UNK, INTO LEFT EYE FORMULATION: UNKNOWN
     Route: 031
     Dates: start: 20220210, end: 20220210
  2. EYLEA [Suspect]
     Active Substance: AFLIBERCEPT
     Dosage: UNK, INTO LEFT EYE FORMULATION: UNKNOWN
     Route: 031
     Dates: start: 20220509, end: 20220509
  3. EYLEA [Suspect]
     Active Substance: AFLIBERCEPT
     Dosage: UNK, INTO LEFT EYE FORMULATION: UNKNOWN
     Route: 031
     Dates: start: 20220725, end: 20220725
  4. EYLEA [Suspect]
     Active Substance: AFLIBERCEPT
     Dosage: UNK, INTO LEFT EYE FORMULATION: UNKNOWN
     Route: 031
     Dates: start: 2022, end: 2022
  5. EYLEA [Suspect]
     Active Substance: AFLIBERCEPT
     Dosage: UNK, INTO LEFT EYE FORMULATION: UNKNOWN
     Route: 031
     Dates: start: 2022, end: 2022
  6. EYLEA [Suspect]
     Active Substance: AFLIBERCEPT
     Dosage: UNK, INTO LEFT EYE FORMULATION: UNKNOWN
     Route: 031
     Dates: start: 20221006, end: 20221006
  7. EYLEA [Suspect]
     Active Substance: AFLIBERCEPT
     Dosage: UNK, INTO LEFT EYE FORMULATION: UNKNOWN
     Route: 031
     Dates: start: 20221110, end: 20221110
  8. EYLEA [Suspect]
     Active Substance: AFLIBERCEPT
     Dosage: UNK, INTO LEFT EYE FORMULATION: UNKNOWN
     Route: 031
     Dates: start: 20221208, end: 20221208
  9. EYLEA [Suspect]
     Active Substance: AFLIBERCEPT
     Dosage: UNK, INTO LEFT EYE FORMULATION: UNKNOWN
     Route: 031
     Dates: start: 20230109, end: 20230109
  10. EYLEA [Suspect]
     Active Substance: AFLIBERCEPT
     Dosage: UNK, INTO LEFT EYE FORMULATION: UNKNOWN
     Route: 031
     Dates: start: 20230324, end: 20230324
  11. EYLEA [Suspect]
     Active Substance: AFLIBERCEPT
     Dosage: UNK, INTO LEFT EYE FORMULATION: UNKNOWN
     Route: 031
     Dates: start: 20230421, end: 20230421
  12. EYLEA [Suspect]
     Active Substance: AFLIBERCEPT
     Dosage: UNK, INTO LEFT EYE FORMULATION: UNKNOWN
     Route: 031
     Dates: start: 2023, end: 2023
  13. EYLEA [Suspect]
     Active Substance: AFLIBERCEPT
     Dosage: UNK, INTO LEFT EYE FORMULATION: UNKNOWN
     Route: 031
     Dates: start: 2023, end: 2023
  14. EYLEA [Suspect]
     Active Substance: AFLIBERCEPT
     Dosage: UNK, INTO LEFT EYE FORMULATION: UNKNOWN
     Route: 031
     Dates: start: 20230616, end: 20230616
  15. EYLEA [Suspect]
     Active Substance: AFLIBERCEPT
     Dosage: UNK, INTO LEFT EYE FORMULATION: UNKNOWN
     Route: 031
     Dates: start: 20230721, end: 20230721
  16. EYLEA [Suspect]
     Active Substance: AFLIBERCEPT
     Dosage: UNK, INTO LEFT EYE FORMULATION: UNKNOWN
     Route: 031
     Dates: start: 20230901, end: 20230901

REACTIONS (1)
  - Drug effect less than expected [Unknown]
